FAERS Safety Report 16212529 (Version 1)
Quarter: 2019Q2

REPORT INFORMATION
  Report Type: Spontaneous
  Country: US (occurrence: US)
  Receive Date: 20190418
  Receipt Date: 20190418
  Transmission Date: 20190711
  Serious: Yes (Other)
  Sender: FDA-Public Use
  Company Number: US-BAYER-2019-076354

PATIENT
  Sex: Male
  Weight: 119.27 kg

DRUGS (1)
  1. KOGENATE FS [Suspect]
     Active Substance: ANTIHEMOPHILIC FACTOR, HUMAN RECOMBINANT
     Indication: HAEMOPHILIA
     Dosage: 3000 IU, PRN
     Route: 042
     Dates: start: 20130329

REACTIONS (2)
  - Fall [None]
  - Traumatic haemorrhage [None]
